FAERS Safety Report 8971510 (Version 3)
Quarter: 2013Q1

REPORT INFORMATION
  Report Type: Spontaneous
  Country: US (occurrence: US)
  Receive Date: 20121217
  Receipt Date: 20130305
  Transmission Date: 20140127
  Serious: Yes (Other)
  Sender: FDA-Public Use
  Company Number: US-BAYER-2012-131752

PATIENT
  Age: 36 Year
  Sex: Female
  Weight: 50.34 kg

DRUGS (1)
  1. MIRENA [Suspect]
     Indication: CONTRACEPTION
     Dosage: 20 MCG/24HR, CONT
     Route: 015
     Dates: start: 20121022, end: 20121114

REACTIONS (3)
  - Genital haemorrhage [Recovered/Resolved]
  - Abdominal pain lower [None]
  - Vaginal haemorrhage [None]
